FAERS Safety Report 20993231 (Version 1)
Quarter: 2022Q2

REPORT INFORMATION
  Report Type: Spontaneous
  Country: US (occurrence: None)
  Receive Date: 20220622
  Receipt Date: 20220622
  Transmission Date: 20220721
  Serious: No
  Sender: FDA-Public Use
  Company Number: None

PATIENT
  Age: 69 Year
  Sex: Female
  Weight: 78.79 kg

DRUGS (9)
  1. CAPECITABINE [Suspect]
     Active Substance: CAPECITABINE
     Indication: Colon cancer
     Dosage: 1500MG TWICE A DAY ORAL
     Route: 048
     Dates: start: 202201
  2. CARVEDILOL [Concomitant]
     Active Substance: CARVEDILOL
  3. COLACE [Concomitant]
     Active Substance: DOCUSATE SODIUM
  4. GLIPIZIDE [Concomitant]
     Active Substance: GLIPIZIDE
  5. LANTUS SOLOSTAR [Concomitant]
     Active Substance: INSULIN GLARGINE
  6. MIRALAX [Concomitant]
     Active Substance: POLYETHYLENE GLYCOL 3350
  7. NIFEDIPINE [Concomitant]
     Active Substance: NIFEDIPINE
  8. ROSUVASTATIN [Concomitant]
     Active Substance: ROSUVASTATIN
  9. VITAMIN D [Concomitant]
     Active Substance: VITAMIN D NOS

REACTIONS (2)
  - Renal failure [None]
  - Nephrotic syndrome [None]
